FAERS Safety Report 7137772-1 (Version None)
Quarter: 2010Q4

REPORT INFORMATION
  Report Type: 
  Country: None (occurrence: None)
  Receive Date: 20101206
  Receipt Date: 20101204
  Transmission Date: 20110411
  Serious: Yes (Disabling)
  Sender: FDA-Public Use
  Company Number: PHHY2009TZ52885

PATIENT
  Sex: Female

DRUGS (1)
  1. COARTEM [Suspect]
     Dosage: 4 TABLETS BID, 3 DAYS IN A WEEK
     Route: 048
     Dates: start: 20090201

REACTIONS (2)
  - DIPLEGIA [None]
  - PARAPLEGIA [None]
